FAERS Safety Report 6232021-0 (Version None)
Quarter: 2009Q2

REPORT INFORMATION
  Report Type: 
  Country: None (occurrence: None)
  Receive Date: 20090612
  Receipt Date: 20090608
  Transmission Date: 20091009
  Serious: Yes (Hospitalization)
  Sender: FDA-Public Use
  Company Number: CA-WYE-G03769909

PATIENT
  Age: 65 Year
  Sex: Male

DRUGS (19)
  1. TACROLIMUS, CONTROL FOR SIROLIMUS  (TACROLIMUS, CONTROL FOR SIROLIMUS, [Suspect]
     Indication: IMMUNOSUPPRESSION
     Dosage: ORAL
     Route: 048
     Dates: start: 20061004, end: 20090331
  2. RAPAMUNE [Suspect]
     Indication: PROPHYLAXIS AGAINST TRANSPLANT REJECTION
     Dosage: A LOWER DOSE ORAL; 4 MG 1X PER 1 DAY ORAL
     Route: 048
     Dates: start: 20090311, end: 20090514
  3. RAPAMUNE [Suspect]
     Indication: PROPHYLAXIS AGAINST TRANSPLANT REJECTION
     Dosage: A LOWER DOSE ORAL; 4 MG 1X PER 1 DAY ORAL
     Route: 048
     Dates: start: 20090528
  4. MYCOPHENOLATE MOFETIL [Concomitant]
  5. PREDNISONE TAB [Concomitant]
  6. ATORVASTATIN CALCIUM [Concomitant]
  7. PANTOPRAZOLE SODIUM [Concomitant]
  8. FUROSEMIDE [Concomitant]
  9. OS-CAL (CALCIUM CARBONATE) [Concomitant]
  10. ONE-ALPHA (ALFACALCIDOL) [Concomitant]
  11. FOSINOPRIL SODIUM [Concomitant]
  12. METOPROLOL SUCCINATE [Concomitant]
  13. NOVOLIN N [Concomitant]
  14. NOVOLOG [Concomitant]
  15. CLONIDINE [Concomitant]
  16. AMLODIPINE [Concomitant]
  17. LYRICA [Concomitant]
  18. DOCUSATE SODIUM (DOCUSATE SODIUM) [Concomitant]
  19. SENNOSIDE A+B (SENNOSIDE A+B) [Concomitant]

REACTIONS (6)
  - BLOOD CREATININE INCREASED [None]
  - BRONCHITIS [None]
  - CONDITION AGGRAVATED [None]
  - HAEMOPTYSIS [None]
  - THERAPEUTIC AGENT TOXICITY [None]
  - THROMBOCYTOPENIA [None]
